FAERS Safety Report 19073103 (Version 1)
Quarter: 2021Q1

REPORT INFORMATION
  Report Type: Report from Study
  Country: FR (occurrence: FR)
  Receive Date: 20210330
  Receipt Date: 20210330
  Transmission Date: 20210420
  Serious: Yes (Other)
  Sender: FDA-Public Use
  Company Number: FR-MYLANLABS-2021M1018081

PATIENT
  Age: 74 Year
  Sex: Male

DRUGS (3)
  1. TAXOTERE [Suspect]
     Active Substance: DOCETAXEL
     Indication: PROSTATE CANCER
     Dosage: UNK
     Route: 065
  2. VINORELBINE [Suspect]
     Active Substance: VINORELBINE TARTRATE
     Indication: PROSTATE CANCER
     Dosage: UNK
     Route: 065
  3. IODINE (125 I) [Concomitant]
     Indication: PROSTATE CANCER
     Dosage: UNK, TRANSPERINEAL IMPLANTS OF IODINE?125 SEEDS
     Route: 065

REACTIONS (1)
  - Treatment failure [Unknown]
